FAERS Safety Report 25523121 (Version 2)
Quarter: 2025Q3

REPORT INFORMATION
  Report Type: Report from Study
  Country: US (occurrence: US)
  Receive Date: 20250707
  Receipt Date: 20250915
  Transmission Date: 20251021
  Serious: Yes (Hospitalization)
  Sender: NOVARTIS
  Company Number: US-002147023-NVSC2025US092327

PATIENT
  Age: 60 Year
  Sex: Female

DRUGS (2)
  1. KESIMPTA [Suspect]
     Active Substance: OFATUMUMAB
     Indication: Product used for unknown indication
     Dosage: 20 MG, QMO
     Route: 050
     Dates: start: 20250507
  2. KESIMPTA [Suspect]
     Active Substance: OFATUMUMAB
     Dosage: 20 MG/KG, QMO (0.4 ML)
     Route: 050
     Dates: start: 20250519

REACTIONS (4)
  - Myocardial infarction [Unknown]
  - Chills [Unknown]
  - Feeling cold [Unknown]
  - Visual impairment [Unknown]

NARRATIVE: CASE EVENT DATE: 20250524
